FAERS Safety Report 7643621-5 (Version None)
Quarter: 2011Q3

REPORT INFORMATION
  Report Type: 
  Country: None (occurrence: None)
  Receive Date: 20110729
  Receipt Date: 20110715
  Transmission Date: 20111222
  Serious: Yes (Other)
  Sender: FDA-Public Use
  Company Number: US-UCBSA-031596

PATIENT
  Sex: Female
  Weight: 95.25 kg

DRUGS (15)
  1. SEASONIQUE [Concomitant]
     Indication: ORAL CONTRACEPTION
     Dosage: ONE TABLET DAILY
     Route: 048
     Dates: start: 20100101
  2. ASPIRIN [Concomitant]
     Dosage: IN EVENING
     Route: 048
     Dates: start: 20110101
  3. VIMPAT [Suspect]
     Dosage: MORNING AND EVENING
     Route: 048
     Dates: start: 20110602, end: 20110615
  4. HYDROCHLOROTHIAZIDE [Concomitant]
     Indication: HYPERTENSION
     Route: 048
  5. SYNTHROID [Concomitant]
     Indication: HYPOTHYROIDISM
     Route: 048
     Dates: start: 20110101
  6. TRAZODONE HCL [Concomitant]
     Indication: INSOMNIA
     Dosage: AT BEDTIME
     Route: 048
     Dates: start: 20110101
  7. BALZIVA [Concomitant]
     Indication: CONTRACEPTION
     Dosage: 1 TABLET
     Route: 048
     Dates: start: 20110101
  8. FOLIC ACID [Concomitant]
     Indication: VITAMIN SUPPLEMENTATION
     Route: 048
     Dates: start: 20060101
  9. VIMPAT [Suspect]
     Dosage: MORNING AND EVENING
     Route: 048
     Dates: start: 20110602, end: 20110615
  10. M.V.I. [Concomitant]
     Indication: SUPPLEMENTATION THERAPY
     Dosage: 1 TABLET A DAY
     Route: 048
     Dates: start: 20010101
  11. VIMPAT [Suspect]
     Indication: PETIT MAL EPILEPSY
     Route: 048
     Dates: start: 20110407, end: 20110421
  12. VIMPAT [Suspect]
     Indication: EPILEPSY
     Route: 048
     Dates: start: 20110407, end: 20110421
  13. HYDROCHLOROTHIAZIDE [Concomitant]
     Indication: BLOOD PRESSURE
     Route: 048
  14. LEVOTHYROXINE SODIUM [Concomitant]
     Indication: THYROID DISORDER
     Route: 048
  15. LOSARTAN POTASSIUM [Concomitant]
     Indication: BLOOD POTASSIUM DECREASED
     Route: 048
     Dates: start: 20110101

REACTIONS (5)
  - DIPLOPIA [None]
  - EYE MOVEMENT DISORDER [None]
  - CONVULSION [None]
  - DIZZINESS [None]
  - GAIT DISTURBANCE [None]
